FAERS Safety Report 4977871-3 (Version None)
Quarter: 2006Q2

REPORT INFORMATION
  Report Type: 
  Country: None (occurrence: None)
  Receive Date: 20060420
  Receipt Date: 20060306
  Transmission Date: 20061013
  Serious: Yes (Other)
  Sender: FDA-Public Use
  Company Number: 2006003988

PATIENT
  Age: 55 Year
  Sex: Female
  Weight: 100 kg

DRUGS (1)
  1. QUILONUM RETARD [Suspect]
     Dosage: 3TAB PER DAY
     Route: 048

REACTIONS (4)
  - RENAL FAILURE [None]
  - RESTLESSNESS [None]
  - SLUGGISHNESS [None]
  - THERAPEUTIC AGENT TOXICITY [None]
